FAERS Safety Report 12840118 (Version 1)
Quarter: 2016Q4

REPORT INFORMATION
  Report Type: Spontaneous
  Country: US (occurrence: US)
  Receive Date: 20161012
  Receipt Date: 20161012
  Transmission Date: 20170207
  Serious: No
  Sender: FDA-Public Use
  Company Number: US-GLAXOSMITHKLINE-US2016148778

PATIENT
  Age: 79 Year
  Sex: Female

DRUGS (1)
  1. ABREVA [Suspect]
     Active Substance: DOCOSANOL
     Indication: ORAL HERPES
     Dosage: UNK
     Dates: start: 20161002

REACTIONS (4)
  - Application site erythema [Not Recovered/Not Resolved]
  - Lip blister [Recovered/Resolved]
  - Lip swelling [Not Recovered/Not Resolved]
  - Product quality issue [Unknown]
